FAERS Safety Report 14330637 (Version 1)
Quarter: 2017Q4

REPORT INFORMATION
  Report Type: Spontaneous
  Country: JP (occurrence: JP)
  Receive Date: 20171227
  Receipt Date: 20171227
  Transmission Date: 20180321
  Serious: Yes (Other)
  Sender: FDA-Public Use
  Company Number: JP-CIPLA LTD.-2017JP23277

PATIENT

DRUGS (6)
  1. GEMCITABINE [Suspect]
     Active Substance: GEMCITABINE\GEMCITABINE HYDROCHLORIDE
     Indication: METASTASES TO LIVER
     Dosage: 70 MG/M2 ON DAYS 1, 8, AND 15, OF EVERY 28-DAY CYCLE.
     Route: 065
  2. GEMCITABINE [Suspect]
     Active Substance: GEMCITABINE\GEMCITABINE HYDROCHLORIDE
     Indication: ACINAR CELL CARCINOMA OF PANCREAS
  3. TEGAFUR/GIMERACIL/OTERACIL [Suspect]
     Active Substance: GIMERACIL\OTERACIL\TEGAFUR
     Indication: DUCTAL ADENOCARCINOMA OF PANCREAS
     Dosage: 80 MG/M2, FROM DAYS 1 TO 28 OF EACH 42-DAY CYCLE
     Route: 065
  4. CISPLATIN. [Suspect]
     Active Substance: CISPLATIN
     Indication: ACINAR CELL CARCINOMA OF PANCREAS
     Dosage: 65 MG/M2, ON DAY 1, CYCLICAL
     Route: 065
  5. ETOPOSIDE. [Suspect]
     Active Substance: ETOPOSIDE
     Indication: ACINAR CELL CARCINOMA OF PANCREAS
     Dosage: 80 MG/M2, ON DAYS 1-3, CYCLICAL
     Route: 065
  6. TEGAFUR/GIMERACIL/OTERACIL [Suspect]
     Active Substance: GIMERACIL\OTERACIL\TEGAFUR
     Dosage: 80 MG/M2, DAILY, 2 WEEKS WITH A 2-WEEK INTERVAL
     Route: 065

REACTIONS (3)
  - Leukopenia [Unknown]
  - Disease progression [Unknown]
  - Neutropenia [Unknown]
